FAERS Safety Report 8797116 (Version 1)
Quarter: 2012Q4

REPORT INFORMATION
  Report Type: 
  Country: US (occurrence: US)
  Receive Date: 20120919
  Receipt Date: 20120919
  Transmission Date: 20130627
  Serious: Yes (Other)
  Sender: FDA-Public Use
  Company Number: CHPA2012US019516

PATIENT
  Age: 77 Year
  Sex: Female

DRUGS (1)
  1. EXCEDRIN EXTRA STRENGTH [Suspect]
     Indication: HEADACHE
     Dosage: 1/2 to 1 DF, PRN
     Route: 048

REACTIONS (3)
  - Neoplasm malignant [Unknown]
  - Wrong technique in drug usage process [Unknown]
  - Underdose [Unknown]
